FAERS Safety Report 5314806-8 (Version None)
Quarter: 2007Q2

REPORT INFORMATION
  Report Type: 
  Country: None (occurrence: None)
  Receive Date: 20070502
  Receipt Date: 20070425
  Transmission Date: 20071010
  Serious: Yes (Life-Threatening)
  Sender: FDA-Public Use
  Company Number: 2007JP001814

PATIENT
  Age: 80 Year
  Sex: Female

DRUGS (6)
  1. CEFAZOLIN [Suspect]
     Indication: DRUG USE FOR UNKNOWN INDICATION
     Route: 042
     Dates: start: 20070216
  2. TAKEPRON [Suspect]
     Indication: DRUG USE FOR UNKNOWN INDICATION
     Dosage: 15MG PER DAY
     Route: 042
     Dates: start: 20070326
  3. BLOPRESS [Concomitant]
  4. AMLODIN [Concomitant]
  5. ALLOPURINOL [Concomitant]
  6. FILGRASTIM [Concomitant]

REACTIONS (5)
  - ANAEMIA [None]
  - ATRIOVENTRICULAR BLOCK [None]
  - AZOTAEMIA [None]
  - PANCYTOPENIA [None]
  - WHITE BLOOD CELL COUNT DECREASED [None]
